FAERS Safety Report 4550718-5 (Version None)
Quarter: 2004Q4

REPORT INFORMATION
  Report Type: 
  Country: None (occurrence: None)
  Receive Date: 20041217
  Receipt Date: 20040916
  Transmission Date: 20050328
  Serious: No
  Sender: FDA-Public Use
  Company Number: 2004-BP-08305BP

PATIENT
  Age: 74 Year
  Sex: Female

DRUGS (6)
  1. SPIRIVA [Suspect]
     Indication: CHRONIC OBSTRUCTIVE AIRWAYS DISEASE
     Dosage: 18 MCG (18 MCG), IH
     Route: 055
     Dates: start: 20040801
  2. LIPITOR [Concomitant]
  3. DILTIAZEM CD (DILTIAZEM) [Concomitant]
  4. HYDROCHLOROTHIAZIDE [Concomitant]
  5. ESTRADIOL [Concomitant]
  6. XANAX [Concomitant]

REACTIONS (5)
  - BREAST DISCOMFORT [None]
  - CYSTITIS [None]
  - DRY MOUTH [None]
  - HOARSENESS [None]
  - MICTURITION URGENCY [None]
